FAERS Safety Report 20460111 (Version 1)
Quarter: 2022Q1

REPORT INFORMATION
  Report Type: Report from Study
  Country: US (occurrence: US)
  Receive Date: 20220211
  Receipt Date: 20220211
  Transmission Date: 20220423
  Serious: Yes (Other)
  Sender: FDA-Public Use
  Company Number: US-GILEAD-2022-0569408

PATIENT
  Sex: Female

DRUGS (3)
  1. AZTREONAM LYSINE [Suspect]
     Active Substance: AZTREONAM LYSINE
     Indication: Cystic fibrosis
     Dosage: 75 MG, TID, 14 DAYS ON THEN 14 DAYS OFF
     Route: 055
  2. KALYDECO [Concomitant]
     Active Substance: IVACAFTOR
     Indication: Cystic fibrosis
     Dosage: TAKE 1 TABLET TWO TIMES DAILY WITH FAT-CONTAINING FOOD
  3. PULMOZYME [Concomitant]
     Active Substance: DORNASE ALFA
     Dosage: PULMOZYME 1MG/ML 2.5ML

REACTIONS (2)
  - Cystic fibrosis [Unknown]
  - Off label use [Not Recovered/Not Resolved]
